FAERS Safety Report 9869559 (Version 3)
Quarter: 2014Q2

REPORT INFORMATION
  Report Type: Spontaneous
  Country: US (occurrence: US)
  Receive Date: 20140205
  Receipt Date: 20140620
  Transmission Date: 20141212
  Serious: No
  Sender: FDA-Public Use
  Company Number: US-PFIZER INC-2014031991

PATIENT
  Age: 59 Year
  Sex: Male

DRUGS (10)
  1. SUTENT [Suspect]
     Indication: RENAL CANCER
     Dosage: 12.5 MG, UNK
     Dates: start: 20140107
  2. ALLOPURINOL [Concomitant]
     Dosage: UNK
  3. ASPIRIN [Concomitant]
     Dosage: UNK
  4. CO Q-10 [Concomitant]
     Dosage: UNK
  5. CRESTOR [Concomitant]
     Dosage: UNK
  6. FISH OIL [Concomitant]
     Dosage: UNK
  7. VITAMIN D3 [Concomitant]
     Dosage: UNK
  8. ZYRTEC [Concomitant]
     Indication: HYPERSENSITIVITY
     Dosage: UNK
  9. LOSARTAN POTASSIUM [Concomitant]
     Dosage: UNK
  10. CILOXAN [Concomitant]
     Dosage: UNK

REACTIONS (4)
  - Decreased appetite [Unknown]
  - Epistaxis [Unknown]
  - Paraesthesia oral [Unknown]
  - Palmar-plantar erythrodysaesthesia syndrome [Unknown]
